FAERS Safety Report 8227100-2 (Version None)
Quarter: 2012Q1

REPORT INFORMATION
  Report Type: 
  Country: None (occurrence: None)
  Receive Date: 20120322
  Receipt Date: 20120314
  Transmission Date: 20120608
  Serious: Yes (Death, Hospitalization, Other)
  Sender: FDA-Public Use
  Company Number: CA-JNJFOC-20110107757

PATIENT
  Sex: Female

DRUGS (2)
  1. REMICADE [Suspect]
     Indication: CROHN'S DISEASE
     Route: 042
     Dates: start: 20090522
  2. ENTOCORT EC [Concomitant]
     Route: 065

REACTIONS (4)
  - SPONDYLITIS [None]
  - ARTHRALGIA [None]
  - ARTHRITIS [None]
  - DEATH [None]
